FAERS Safety Report 16424330 (Version 1)
Quarter: 2019Q2

REPORT INFORMATION
  Report Type: Spontaneous
  Country: RU (occurrence: RU)
  Receive Date: 20190613
  Receipt Date: 20190613
  Transmission Date: 20190711
  Serious: Yes (Death, Other)
  Sender: FDA-Public Use
  Company Number: RU-009507513-1906RUS001953

PATIENT
  Age: 76 Year
  Sex: Female

DRUGS (2)
  1. TEMODAL [Suspect]
     Active Substance: TEMOZOLOMIDE
     Indication: GLIOBLASTOMA
     Dosage: 2 DOSAGE FORMS, 120 MILLIGRAM PER DAY, SUBCUTANEOUSLY
     Route: 058
     Dates: start: 20190118
  2. FRAXIPARINE [Concomitant]
     Active Substance: NADROPARIN CALCIUM
     Indication: GLIOBLASTOMA
     Dosage: 2 DOSAGE FORMS, 120 MILLIGRAM PER DAY, PER OS
     Route: 048
     Dates: start: 20190118

REACTIONS (2)
  - Haemorrhagic stroke [Fatal]
  - Off label use [Fatal]

NARRATIVE: CASE EVENT DATE: 20190205
